FAERS Safety Report 7253763-4 (Version None)
Quarter: 2011Q1

REPORT INFORMATION
  Report Type: 
  Country: None (occurrence: None)
  Receive Date: 20110129
  Receipt Date: 20100129
  Transmission Date: 20110831
  Serious: No
  Sender: FDA-Public Use
  Company Number: US-ABBOTT-10P-163-0623752-00

PATIENT
  Sex: Female

DRUGS (1)
  1. HUMIRA [Suspect]
     Indication: CROHN'S DISEASE
     Dates: start: 20091104

REACTIONS (6)
  - CHILLS [None]
  - PYREXIA [None]
  - BLOOD URINE PRESENT [None]
  - WEIGHT DECREASED [None]
  - VULVOVAGINAL PAIN [None]
  - NIGHT SWEATS [None]
